FAERS Safety Report 4863804-7 (Version None)
Quarter: 2005Q4

REPORT INFORMATION
  Report Type: 
  Country: None (occurrence: None)
  Receive Date: 20051222
  Receipt Date: 20050909
  Transmission Date: 20060501
  Serious: No
  Sender: FDA-Public Use
  Company Number: US-GLAXOSMITHKLINE-A0573594A

PATIENT
  Age: 75 Year
  Sex: Male

DRUGS (11)
  1. FLONASE [Suspect]
     Dosage: 2PUFF PER DAY
     Route: 045
     Dates: end: 20041201
  2. ZOCOR [Concomitant]
  3. HYOSCYAMINE SULFATE [Concomitant]
  4. PAROXETINE HCL [Concomitant]
  5. CLONAZEPAM [Concomitant]
  6. TERAZOSINE [Concomitant]
  7. UNKNOWN MEDICATION [Concomitant]
  8. FEXOFENADINE HCL [Concomitant]
  9. MUCINEX [Concomitant]
  10. SINGULAIR [Concomitant]
  11. LORATADINE [Concomitant]

REACTIONS (1)
  - EPISTAXIS [None]
